FAERS Safety Report 6474066-1 (Version None)
Quarter: 2009Q4

REPORT INFORMATION
  Report Type: 
  Country: None (occurrence: None)
  Receive Date: 20091204
  Receipt Date: 20091127
  Transmission Date: 20100525
  Serious: Yes (Other)
  Sender: FDA-Public Use
  Company Number: AU-JNJFOC-20091107979

PATIENT
  Sex: Female

DRUGS (2)
  1. TOPAMAX [Suspect]
     Indication: MIGRAINE PROPHYLAXIS
     Dosage: STARTED 4 YEARS AGO
  2. TEGRETOL [Concomitant]

REACTIONS (4)
  - DRUG TOXICITY [None]
  - FORMICATION [None]
  - NAUSEA [None]
  - TENSION HEADACHE [None]
